FAERS Safety Report 5149104-9 (Version None)
Quarter: 2006Q4

REPORT INFORMATION
  Report Type: 
  Country: None (occurrence: None)
  Receive Date: 20061113
  Receipt Date: 20060724
  Transmission Date: 20070319
  Serious: No
  Sender: FDA-Public Use
  Company Number: US-GLAXOSMITHKLINE-A0613329A

PATIENT
  Age: 32 Year
  Sex: Female

DRUGS (2)
  1. COREG [Suspect]
     Dosage: 3MG TWICE PER DAY
     Route: 048
     Dates: start: 20060720
  2. BIRTH CONTROL [Concomitant]

REACTIONS (2)
  - HEADACHE [None]
  - PALPITATIONS [None]
